FAERS Safety Report 25935832 (Version 2)
Quarter: 2025Q4

REPORT INFORMATION
  Report Type: Spontaneous
  Country: AU (occurrence: AU)
  Receive Date: 20251017
  Receipt Date: 20251205
  Transmission Date: 20260118
  Serious: Yes (Death)
  Sender: CSL BEHRING
  Company Number: AU-BEH-2025221305

PATIENT
  Age: 70 Year
  Sex: Male

DRUGS (2)
  1. KORSUVA [Suspect]
     Active Substance: DIFELIKEFALIN ACETATE
     Indication: Product used for unknown indication
     Dosage: UNK
     Route: 065
  2. PREGABALIN [Concomitant]
     Active Substance: PREGABALIN
     Dosage: 50 MG, NOCTE

REACTIONS (2)
  - Cardiac valve disease [Fatal]
  - Cardiac failure [Fatal]
